FAERS Safety Report 5355086-7 (Version None)
Quarter: 2007Q2

REPORT INFORMATION
  Report Type: 
  Country: None (occurrence: None)
  Receive Date: 20070613
  Receipt Date: 20070530
  Transmission Date: 20071010
  Serious: Yes (Other)
  Sender: FDA-Public Use
  Company Number: JP-BAYER-200712997GDS

PATIENT
  Age: 57 Year
  Sex: Female

DRUGS (2)
  1. ASPIRIN [Suspect]
     Indication: DRUG USE FOR UNKNOWN INDICATION
     Route: 065
  2. WARFARIN SODIUM [Suspect]
     Indication: PARADOXICAL EMBOLISM

REACTIONS (3)
  - PARADOXICAL EMBOLISM [None]
  - THALAMIC INFARCTION [None]
  - THALAMUS HAEMORRHAGE [None]
